FAERS Safety Report 21843107 (Version 1)
Quarter: 2023Q1

REPORT INFORMATION
  Report Type: Spontaneous
  Country: US (occurrence: None)
  Receive Date: 20230109
  Receipt Date: 20230109
  Transmission Date: 20230418
  Serious: Yes (Other)
  Sender: FDA-Public Use
  Company Number: None

PATIENT
  Age: 30 Year
  Sex: Male
  Weight: 68.4 kg

DRUGS (4)
  1. FLUOXETINE [Suspect]
     Active Substance: FLUOXETINE HYDROCHLORIDE
     Indication: Depression
     Dosage: FREQUENCY : DAILY;?
     Route: 048
     Dates: start: 20220727, end: 20220731
  2. VITAMINS [Concomitant]
     Active Substance: VITAMINS
  3. FISH OIL [Concomitant]
     Active Substance: FISH OIL
  4. full-spectrum CBD [Concomitant]

REACTIONS (11)
  - Emotional disorder [None]
  - Suicidal ideation [None]
  - Drug withdrawal syndrome [None]
  - Dizziness [None]
  - Stress [None]
  - Irritability [None]
  - Agitation [None]
  - Mania [None]
  - Nightmare [None]
  - Fatigue [None]
  - Cognitive disorder [None]

NARRATIVE: CASE EVENT DATE: 20220817
